FAERS Safety Report 23794604 (Version 3)
Quarter: 2024Q4

REPORT INFORMATION
  Report Type: Spontaneous
  Country: CA (occurrence: CA)
  Receive Date: 20240429
  Receipt Date: 20241220
  Transmission Date: 20250114
  Serious: Yes (Hospitalization)
  Sender: MIRUM PHARMACEUTICALS
  Company Number: CA-MIRUM PHARMACEUTICALS INTERNATIONAL B.V.-CA-MIR-24-00228

PATIENT

DRUGS (3)
  1. LIVMARLI [Suspect]
     Active Substance: MARALIXIBAT CHLORIDE
     Indication: Progressive familial intrahepatic cholestasis
     Dosage: 1.75 MILLILITER, QD
     Route: 064
     Dates: start: 20240126, end: 20240405
  2. LIVMARLI [Suspect]
     Active Substance: MARALIXIBAT CHLORIDE
     Indication: Cholestasis of pregnancy
  3. URSODIOL [Concomitant]
     Active Substance: URSODIOL
     Indication: Product used for unknown indication
     Dosage: UNK
     Route: 064

REACTIONS (5)
  - Jaundice neonatal [Unknown]
  - Blood bilirubin increased [Recovering/Resolving]
  - Neonatal aspiration [Recovered/Resolved]
  - Premature baby [Recovered/Resolved]
  - Foetal exposure during pregnancy [Unknown]

NARRATIVE: CASE EVENT DATE: 20240401
